FAERS Safety Report 5953792-4 (Version None)
Quarter: 2008Q4

REPORT INFORMATION
  Report Type: 
  Country: None (occurrence: None)
  Receive Date: 20081114
  Receipt Date: 20081103
  Transmission Date: 20090506
  Serious: Yes (Hospitalization, Other)
  Sender: FDA-Public Use
  Company Number: CA-ELI_LILLY_AND_COMPANY-CA200811000953

PATIENT
  Age: 78 Year
  Sex: Female

DRUGS (9)
  1. FORTEO [Suspect]
     Indication: OSTEOPOROSIS
     Dosage: 20 UG, DAILY (1/D)
     Dates: start: 20080307, end: 20081001
  2. ZOCOR [Concomitant]
  3. SYNTHROID [Concomitant]
  4. NITROGLYCERIN [Concomitant]
  5. VITAMIN D [Concomitant]
  6. CALCIUM [Concomitant]
  7. VENTOLIN [Concomitant]
  8. ADVAIR DISKUS 100/50 [Concomitant]
  9. ENTROPHEN [Concomitant]

REACTIONS (1)
  - CEREBROVASCULAR ACCIDENT [None]
